FAERS Safety Report 4766333-4 (Version None)
Quarter: 2005Q3

REPORT INFORMATION
  Report Type: 
  Country: None (occurrence: None)
  Receive Date: 20050906
  Receipt Date: 20050818
  Transmission Date: 20060218
  Serious: Yes (Life-Threatening, Other)
  Sender: FDA-Public Use
  Company Number: US_0508121040

PATIENT
  Age: 1 Year
  Sex: Male
  Weight: 4 kg

DRUGS (3)
  1. HUMULIN N [Suspect]
     Dates: start: 20030701, end: 20031003
  2. PRENATAL VITAMINS [Concomitant]
  3. ACETAMINOPHEN [Concomitant]

REACTIONS (6)
  - CAESAREAN SECTION [None]
  - DRUG EXPOSURE DURING PREGNANCY [None]
  - DRUG EXPOSURE VIA BREAST MILK [None]
  - FOETAL HEART RATE DISORDER [None]
  - HEART RATE DECREASED [None]
  - PHARMACEUTICAL PRODUCT COMPLAINT [None]
